FAERS Safety Report 10058592 (Version 2)
Quarter: 2014Q2

REPORT INFORMATION
  Report Type: Spontaneous
  Country: US (occurrence: US)
  Receive Date: 20140404
  Receipt Date: 20140404
  Transmission Date: 20141212
  Serious: No
  Sender: FDA-Public Use
  Company Number: US-MALLINCKRODT-T201305132

PATIENT
  Sex: Male

DRUGS (2)
  1. TEMAZEPAM [Suspect]
     Indication: PRODUCT USED FOR UNKNOWN INDICATION
     Dosage: UNK
     Route: 065
  2. XYREM [Suspect]
     Indication: NARCOLEPSY
     Dosage: UNK
     Route: 065

REACTIONS (2)
  - Local swelling [Unknown]
  - Abdominal distension [Unknown]
